FAERS Safety Report 5512584-0 (Version None)
Quarter: 2007Q4

REPORT INFORMATION
  Report Type: 
  Country: None (occurrence: None)
  Receive Date: 20071112
  Receipt Date: 20071102
  Transmission Date: 20080405
  Serious: Yes (Other)
  Sender: FDA-Public Use
  Company Number: PHHO2007DE16690

PATIENT
  Age: 54 Year
  Sex: Female
  Weight: 59 kg

DRUGS (4)
  1. CALCIUM [Concomitant]
     Indication: HYPERPARATHYROIDISM
  2. AMN107 [Suspect]
     Indication: GASTROINTESTINAL STROMAL TUMOUR
     Dosage: 200 MG, BID
     Route: 048
     Dates: start: 20070906, end: 20071002
  3. AMN107 [Suspect]
     Dosage: 400 MG, BID
     Route: 048
     Dates: start: 20071003, end: 20071005
  4. ROCALTROL [Concomitant]

REACTIONS (9)
  - BILIRUBIN CONJUGATED INCREASED [None]
  - BLOOD CREATININE INCREASED [None]
  - BONE PAIN [None]
  - FATIGUE [None]
  - HYPERCALCAEMIA [None]
  - MALIGNANT NEOPLASM PROGRESSION [None]
  - NAUSEA [None]
  - RENAL FAILURE ACUTE [None]
  - VOMITING [None]
